FAERS Safety Report 9858240 (Version 1)
Quarter: 2014Q1

REPORT INFORMATION
  Report Type: Spontaneous
  Country: GB (occurrence: None)
  Receive Date: 20140129
  Receipt Date: 20140129
  Transmission Date: 20141002
  Serious: Yes (Life-Threatening, Hospitalization, Other)
  Sender: FDA-Public Use
  Company Number: AUR-APL-2013-07756

PATIENT
  Age: 64 Year
  Sex: Male
  Weight: 70 kg

DRUGS (7)
  1. AMISULPRIDE (AMISULPRIDE) [Suspect]
     Indication: SCHIZOPHRENIA
     Dosage: 1200 MG (1200 MG, 1 IN 1 D), ORAL
     Route: 048
     Dates: end: 20130829
  2. PAROXETINE (PAROXETINE) [Suspect]
     Indication: PRODUCT USED FOR UNKNOWN INDICATION
     Dosage: 50 MG, (50 MG, 1 IN 1 D), ORAL
     Route: 048
  3. OLANZAPINE (OLANZAPINE) [Suspect]
     Indication: PRODUCT USED FOR UNKNOWN INDICATION
     Dosage: 7.5 MG (7.5 MG, 1 N 1 D), ORAL
     Route: 048
     Dates: end: 20130830
  4. METFORMIN (METFORMIN) [Concomitant]
  5. PIOGLITAZONE (PIOGLITAZONE) [Concomitant]
  6. SIMVASTATIN (SIMVASTATIN) [Concomitant]
  7. ZOPICLONE (ZOPICLONE) [Concomitant]

REACTIONS (2)
  - Neuroleptic malignant syndrome [None]
  - Fall [None]
